FAERS Safety Report 5642761-X (Version None)
Quarter: 2008Q1

REPORT INFORMATION
  Report Type: 
  Country: None (occurrence: None)
  Receive Date: 20080228
  Receipt Date: 20080218
  Transmission Date: 20080703
  Serious: Yes (Hospitalization, Other)
  Sender: FDA-Public Use
  Company Number: US-AMGEN-STX265995

PATIENT
  Sex: Female

DRUGS (4)
  1. ENBREL [Suspect]
     Indication: RHEUMATOID ARTHRITIS
     Route: 058
     Dates: start: 19990501
  2. PLAQUENIL [Concomitant]
     Indication: RHEUMATOID ARTHRITIS
     Route: 065
  3. OXYGEN [Concomitant]
     Route: 055
     Dates: start: 20020101
  4. UNSPECIFIED DIURETIC [Concomitant]
     Route: 065
     Dates: start: 20071128, end: 20071207

REACTIONS (8)
  - ARTHRALGIA [None]
  - BLOOD POTASSIUM ABNORMAL [None]
  - CHRONIC OBSTRUCTIVE PULMONARY DISEASE [None]
  - JOINT INJURY [None]
  - PNEUMONIA [None]
  - POSTOPERATIVE WOUND COMPLICATION [None]
  - SWELLING [None]
  - THROMBOSIS [None]
